FAERS Safety Report 8904075 (Version 3)
Quarter: 2012Q4

REPORT INFORMATION
  Report Type: 
  Country: US (occurrence: US)
  Receive Date: 20121112
  Receipt Date: 20121120
  Transmission Date: 20130627
  Serious: Yes (Hospitalization, Other)
  Sender: FDA-Public Use
  Company Number: US-PFIZER INC-2012272948

PATIENT
  Age: 68 Year
  Sex: Male

DRUGS (2)
  1. DEPO-MEDROL [Suspect]
     Dosage: 80 mg/ml
     Route: 014
     Dates: start: 20120829
  2. LIDOCAINE HCL [Suspect]
     Dosage: UNK
     Route: 014

REACTIONS (1)
  - Cerebral fungal infection [Unknown]
